FAERS Safety Report 10162111 (Version 1)
Quarter: 2014Q2

REPORT INFORMATION
  Report Type: Spontaneous
  Country: US (occurrence: None)
  Receive Date: 20140507
  Receipt Date: 20140507
  Transmission Date: 20141212
  Serious: Yes (Congenital Anomaly)
  Sender: FDA-Public Use
  Company Number: 2014AP002830

PATIENT
  Sex: Female

DRUGS (1)
  1. PAXIL [Suspect]
     Route: 064

REACTIONS (11)
  - Atrial septal defect [None]
  - Mitral valve incompetence [None]
  - Cardiovascular disorder [None]
  - Congenital anomaly [None]
  - Pulmonary valve stenosis [None]
  - Anhedonia [None]
  - Quality of life decreased [None]
  - Injury [None]
  - Pain [None]
  - Anxiety [None]
  - Maternal drugs affecting foetus [None]
